FAERS Safety Report 7611046-4 (Version None)
Quarter: 2011Q3

REPORT INFORMATION
  Report Type: 
  Country: None (occurrence: None)
  Receive Date: 20110707
  Receipt Date: 20110621
  Transmission Date: 20111222
  Serious: Yes (Hospitalization)
  Sender: FDA-Public Use
  Company Number: LTI2011A00183

PATIENT
  Age: 72 Year
  Sex: Male

DRUGS (7)
  1. ENALAPRIL MALEATE [Concomitant]
  2. BUPRENORPHINE [Concomitant]
  3. ACTOS [Suspect]
     Indication: TYPE 2 DIABETES MELLITUS
     Dosage: ORAL
     Route: 048
     Dates: start: 20060601, end: 20061201
  4. ATORVASTATINE (ATORVASTATIN) [Concomitant]
  5. METFORMIN HCL [Concomitant]
  6. ATENOLOL [Concomitant]
  7. ACID ACETYLSALICYLIC (ACETYLSALICYLIC ACID) [Concomitant]

REACTIONS (2)
  - HAEMATURIA [None]
  - BLADDER TRANSITIONAL CELL CARCINOMA [None]
